FAERS Safety Report 23663180 (Version 1)
Quarter: 2024Q1

REPORT INFORMATION
  Report Type: Spontaneous
  Country: FR (occurrence: FR)
  Receive Date: 20240322
  Receipt Date: 20240322
  Transmission Date: 20240410
  Serious: Yes (Life-Threatening)
  Sender: FDA-Public Use
  Company Number: None

PATIENT
  Age: 59 Year
  Sex: Male
  Weight: 65 kg

DRUGS (17)
  1. OPDIVO [Suspect]
     Active Substance: NIVOLUMAB
     Indication: Oesophageal squamous cell carcinoma metastatic
     Route: 042
     Dates: start: 20231023, end: 20231023
  2. OPDIVO [Suspect]
     Active Substance: NIVOLUMAB
     Route: 042
     Dates: start: 20231113, end: 20231113
  3. OPDIVO [Suspect]
     Active Substance: NIVOLUMAB
     Route: 042
     Dates: start: 20231205, end: 20231205
  4. OPDIVO [Suspect]
     Active Substance: NIVOLUMAB
     Route: 042
     Dates: start: 20240116, end: 20240116
  5. OPDIVO [Suspect]
     Active Substance: NIVOLUMAB
     Route: 042
     Dates: start: 20240130, end: 20240130
  6. OXALIPLATIN [Concomitant]
     Active Substance: OXALIPLATIN
     Indication: Oesophageal squamous cell carcinoma metastatic
     Route: 042
     Dates: start: 20231205, end: 20231205
  7. OXALIPLATIN [Concomitant]
     Active Substance: OXALIPLATIN
     Route: 042
     Dates: start: 20240130, end: 20240130
  8. OXALIPLATIN [Concomitant]
     Active Substance: OXALIPLATIN
     Route: 042
     Dates: start: 20240116, end: 20240116
  9. OXALIPLATIN [Concomitant]
     Active Substance: OXALIPLATIN
     Route: 042
     Dates: start: 20231113, end: 20231113
  10. OXALIPLATIN [Concomitant]
     Active Substance: OXALIPLATIN
     Route: 042
     Dates: start: 20231023, end: 20231023
  11. OXALIPLATIN [Concomitant]
     Active Substance: OXALIPLATIN
     Route: 042
     Dates: start: 20231010, end: 20231010
  12. FLUOROURACIL [Concomitant]
     Active Substance: FLUOROURACIL
     Indication: Oesophageal squamous cell carcinoma metastatic
     Route: 042
     Dates: start: 20240116, end: 20240116
  13. FLUOROURACIL [Concomitant]
     Active Substance: FLUOROURACIL
     Route: 042
     Dates: start: 20231205, end: 20231205
  14. FLUOROURACIL [Concomitant]
     Active Substance: FLUOROURACIL
     Route: 042
     Dates: start: 20231010, end: 20231010
  15. FLUOROURACIL [Concomitant]
     Active Substance: FLUOROURACIL
     Route: 042
     Dates: start: 20231023, end: 20231023
  16. FLUOROURACIL [Concomitant]
     Active Substance: FLUOROURACIL
     Route: 042
     Dates: start: 20231113, end: 20231113
  17. FLUOROURACIL [Concomitant]
     Active Substance: FLUOROURACIL
     Route: 042
     Dates: start: 20240130, end: 20240130

REACTIONS (1)
  - Drug eruption [Recovering/Resolving]

NARRATIVE: CASE EVENT DATE: 20240202
